FAERS Safety Report 5772156-X (Version None)
Quarter: 2008Q2

REPORT INFORMATION
  Report Type: 
  Country: None (occurrence: None)
  Receive Date: 20080612
  Receipt Date: 20080612
  Transmission Date: 20081010
  Serious: Yes (Hospitalization)
  Sender: FDA-Public Use
  Company Number: None

PATIENT
  Age: 63 Year
  Sex: Male
  Weight: 83.91 kg

DRUGS (2)
  1. ENOXAPARIN SODIUM [Suspect]
     Indication: AORTIC VALVE REPLACEMENT
     Dosage: 80 MG BID SQ
     Route: 058
     Dates: start: 20080520, end: 20080522
  2. WARFARIN SODIUM [Suspect]
     Dosage: 5 MG EVERY DAY PO
     Route: 048
     Dates: start: 20050429

REACTIONS (2)
  - ILL-DEFINED DISORDER [None]
  - MUSCLE HAEMORRHAGE [None]
